FAERS Safety Report 17035214 (Version 5)
Quarter: 2020Q1

REPORT INFORMATION
  Report Type: Spontaneous
  Country: US (occurrence: US)
  Receive Date: 20191115
  Receipt Date: 20200103
  Transmission Date: 20200409
  Serious: Yes (Death, Hospitalization)
  Sender: FDA-Public Use
  Company Number: US-KARYOPHARM-2019KPT000756

PATIENT

DRUGS (2)
  1. ZOFRAN [Concomitant]
     Active Substance: ONDANSETRON HYDROCHLORIDE
     Indication: NAUSEA
  2. XPOVIO [Suspect]
     Active Substance: SELINEXOR
     Indication: PLASMA CELL MYELOMA
     Dosage: 80 MG, 2X/WEEK
     Route: 048
     Dates: start: 20191021, end: 20191028

REACTIONS (15)
  - Hallucination [Unknown]
  - Vomiting [Unknown]
  - Oral fungal infection [Recovered/Resolved]
  - Diarrhoea [Unknown]
  - Bacteraemia [Unknown]
  - Leukopenia [Recovered/Resolved]
  - Asthenia [Unknown]
  - Nausea [Unknown]
  - Weight decreased [Unknown]
  - Pneumonia [Unknown]
  - Decreased appetite [Unknown]
  - Fatigue [Unknown]
  - Death [Fatal]
  - Sepsis [Unknown]
  - Abnormal dreams [Unknown]

NARRATIVE: CASE EVENT DATE: 20191021
